FAERS Safety Report 14091322 (Version 1)
Quarter: 2017Q4

REPORT INFORMATION
  Report Type: Spontaneous
  Country: US (occurrence: US)
  Receive Date: 20171016
  Receipt Date: 20171016
  Transmission Date: 20180321
  Serious: Yes (Other)
  Sender: FDA-Public Use
  Company Number: US-009507513-1710USA005971

PATIENT
  Sex: Female

DRUGS (1)
  1. NEXPLANON [Suspect]
     Active Substance: ETONOGESTREL
     Indication: CONTRACEPTION
     Dosage: 1 SINGLE, ONCE, FOR UP TO THREE YEARS
     Route: 059
     Dates: end: 2015

REACTIONS (2)
  - Intracranial pressure increased [Unknown]
  - Optic nerve injury [Unknown]

NARRATIVE: CASE EVENT DATE: 2015
